FAERS Safety Report 25364607 (Version 2)
Quarter: 2025Q3

REPORT INFORMATION
  Report Type: Spontaneous
  Country: EU (occurrence: EU)
  Receive Date: 20250527
  Receipt Date: 20250704
  Transmission Date: 20251020
  Serious: Yes (Other)
  Sender: INCYTE
  Company Number: EU-EVENT-002888

PATIENT
  Age: 29 Year

DRUGS (2)
  1. PEMAZYRE [Suspect]
     Active Substance: PEMIGATINIB
     Indication: Glioneuronal tumour
     Dosage: 13.5 MILLIGRAM/DAY FOR 14 DAYS ON AND 7 DAYS OFF
     Route: 065
  2. PEMAZYRE [Suspect]
     Active Substance: PEMIGATINIB
     Dosage: 9 MILLIGRAM/DAY FOR 14 DAYS ON AND 7 DAYS OFF
     Route: 065

REACTIONS (5)
  - Osteomalacia [Not Recovered/Not Resolved]
  - Hypophosphataemia [Unknown]
  - Fibroblast growth factor 23 increased [Unknown]
  - Off label use [Unknown]
  - Hyperphosphataemia [Recovered/Resolved]
